FAERS Safety Report 4633174-8 (Version None)
Quarter: 2005Q2

REPORT INFORMATION
  Report Type: 
  Country: None (occurrence: None)
  Receive Date: 20050412
  Receipt Date: 20050412
  Transmission Date: 20051028
  Serious: Yes (Death)
  Sender: FDA-Public Use
  Company Number: None

PATIENT
  Age: 21 Year
  Sex: Female

DRUGS (2)
  1. MISOPROSTOL [Suspect]
     Indication: ABORTION
     Dosage: INSERT 4 TABLETS VAGINALLY
     Route: 067
     Dates: start: 20031224, end: 20031229
  2. MIFEPREX [Suspect]
     Indication: ABORTION

REACTIONS (10)
  - ABORTION INDUCED INCOMPLETE [None]
  - ACUTE PULMONARY OEDEMA [None]
  - CARDIAC FAILURE [None]
  - DRUG EXPOSURE DURING PREGNANCY [None]
  - INFLAMMATION [None]
  - LEUKOCYTOSIS [None]
  - MALAISE [None]
  - POST PROCEDURAL COMPLICATION [None]
  - SEPSIS [None]
  - UTERINE ENLARGEMENT [None]
